FAERS Safety Report 10685305 (Version 2)
Quarter: 2015Q1

REPORT INFORMATION
  Report Type: Spontaneous
  Country: US (occurrence: None)
  Receive Date: 20141222
  Receipt Date: 20150320
  Transmission Date: 20150720
  Serious: Yes (Other)
  Sender: FDA-Public Use
  Company Number: A-NJ2014-107282

PATIENT
  Age: 69 Year
  Sex: Male

DRUGS (2)
  1. VALCHLOR [Suspect]
     Active Substance: MECHLORETHAMINE
     Indication: MYCOSIS FUNGOIDES
     Route: 061
     Dates: start: 20140528, end: 20141030
  2. CLOBETASOL (CLOBETASOL PROPIONATE) [Concomitant]

REACTIONS (7)
  - Skin reaction [None]
  - Disease progression [None]
  - Pain [None]
  - Mycosis fungoides [None]
  - Pruritus [None]
  - Blister [None]
  - Acne [None]

NARRATIVE: CASE EVENT DATE: 20141029
